FAERS Safety Report 5844626-7 (Version None)
Quarter: 2008Q3

REPORT INFORMATION
  Report Type: 
  Country: None (occurrence: None)
  Receive Date: 20080812
  Receipt Date: 20080731
  Transmission Date: 20090109
  Serious: Yes (Hospitalization)
  Sender: FDA-Public Use
  Company Number: 2008001683

PATIENT
  Age: 66 Year
  Sex: Male

DRUGS (10)
  1. ERLOTINIB (ERLOTINIB) [Suspect]
     Indication: LUNG SQUAMOUS CELL CARCINOMA STAGE UNSPECIFIED
     Dosage: (150 MG, QD) , ORAL
     Route: 048
     Dates: start: 20080606
  2. OXYCONTIN [Concomitant]
  3. NOVAMIN (PROCHLORPERAZINE) [Concomitant]
  4. OXINORM (ORGOTEIN) [Concomitant]
  5. ADONA (CARBAZOCHROME SODIUM SULFONATE) [Concomitant]
  6. TRANSAMIN (TRANEXAMIC ACID) [Concomitant]
  7. LASIX [Concomitant]
  8. PURSENNID (SENNA LEAF) [Concomitant]
  9. CLARITHROMYCIN [Concomitant]
  10. ALDACTONE [Concomitant]

REACTIONS (11)
  - ASCITES [None]
  - BACTERIAL INFECTION [None]
  - C-REACTIVE PROTEIN INCREASED [None]
  - DISEASE PROGRESSION [None]
  - DYSPNOEA [None]
  - INTERSTITIAL LUNG DISEASE [None]
  - LIVER DISORDER [None]
  - MALIGNANT PLEURAL EFFUSION [None]
  - PLEURAL EFFUSION [None]
  - PRURITUS [None]
  - SPUTUM CULTURE POSITIVE [None]
